FAERS Safety Report 4821466-9 (Version None)
Quarter: 2005Q4

REPORT INFORMATION
  Report Type: 
  Country: None (occurrence: None)
  Receive Date: 20051107
  Receipt Date: 20051027
  Transmission Date: 20060501
  Serious: Yes (Other)
  Sender: FDA-Public Use
  Company Number: PHBS2005JP16005

PATIENT

DRUGS (1)
  1. LIORESAL [Suspect]
     Dosage: 10 MG, TID
     Route: 048

REACTIONS (3)
  - EXCITABILITY [None]
  - HALLUCINATION [None]
  - HYPOAESTHESIA [None]
